FAERS Safety Report 4280569-0 (Version None)
Quarter: 2004Q1

REPORT INFORMATION
  Report Type: 
  Country: None (occurrence: None)
  Receive Date: 20040127
  Receipt Date: 20040113
  Transmission Date: 20041129
  Serious: Yes (Hospitalization)
  Sender: FDA-Public Use
  Company Number: CERZ-10496

PATIENT
  Age: 9 Month
  Sex: Male
  Weight: 8.1 kg

DRUGS (1)
  1. CEREZYME [Suspect]
     Indication: GAUCHER'S DISEASE
     Dosage: 600 UNITS Q2WKS IV
     Route: 036
     Dates: start: 20030715

REACTIONS (2)
  - CONVULSION [None]
  - VARICELLA [None]
